FAERS Safety Report 11682841 (Version 1)
Quarter: 2015Q4

REPORT INFORMATION
  Report Type: Spontaneous
  Country: IL (occurrence: IL)
  Receive Date: 20151029
  Receipt Date: 20151029
  Transmission Date: 20160304
  Serious: Yes (Other)
  Sender: FDA-Public Use
  Company Number: IL-ASTRAZENECA-2015SF03437

PATIENT
  Age: 75 Year
  Sex: Female

DRUGS (4)
  1. MEDICATION FOR HEART [Concomitant]
  2. NEXIUM [Suspect]
     Active Substance: ESOMEPRAZOLE MAGNESIUM
     Route: 048
  3. AMIODARONE HYDROCHLORIDE. [Concomitant]
     Active Substance: AMIODARONE HYDROCHLORIDE
  4. NEXIUM [Suspect]
     Active Substance: ESOMEPRAZOLE MAGNESIUM
     Route: 048

REACTIONS (4)
  - Hip fracture [Unknown]
  - Neck injury [Unknown]
  - Eye disorder [Unknown]
  - Fall [Unknown]

NARRATIVE: CASE EVENT DATE: 201411
